FAERS Safety Report 16587684 (Version 1)
Quarter: 2019Q3

REPORT INFORMATION
  Report Type: Spontaneous
  Country: FR (occurrence: FR)
  Receive Date: 20190717
  Receipt Date: 20190717
  Transmission Date: 20191004
  Serious: Yes (Hospitalization, Other)
  Sender: FDA-Public Use
  Company Number: FR-GLAXOSMITHKLINE-FR2019128568

PATIENT
  Age: 80 Year
  Sex: Female
  Weight: 82 kg

DRUGS (1)
  1. VOLTAREN [Suspect]
     Active Substance: DICLOFENAC SODIUM
     Indication: PAIN IN EXTREMITY
     Dosage: UNK
     Route: 048
     Dates: start: 201609, end: 201609

REACTIONS (3)
  - Abscess limb [Recovered/Resolved]
  - Streptococcal infection [Recovered/Resolved]
  - Device related infection [Recovered/Resolved]

NARRATIVE: CASE EVENT DATE: 201609
